FAERS Safety Report 5123661-0 (Version None)
Quarter: 2006Q3

REPORT INFORMATION
  Report Type: 
  Country: None (occurrence: None)
  Receive Date: 20060811
  Receipt Date: 20060608
  Transmission Date: 20061208
  Serious: No
  Sender: FDA-Public Use
  Company Number: S06-USA-02294-01

PATIENT
  Age: 80 Year
  Sex: Female

DRUGS (4)
  1. NAMENDA [Suspect]
     Dosage: 15 MG QD PO
     Route: 048
     Dates: start: 20060604
  2. NAMENDA [Suspect]
     Dosage: 5 MG QD PO
     Route: 047
     Dates: start: 20060521, end: 20060527
  3. NAMENDA [Suspect]
     Dosage: 5 MG BID PO
     Route: 048
     Dates: start: 20060528, end: 20060603
  4. MULTIPLE MEDICATIONS (NOS) [Concomitant]

REACTIONS (1)
  - SOMNOLENCE [None]
